FAERS Safety Report 4712196-2 (Version None)
Quarter: 2005Q3

REPORT INFORMATION
  Report Type: 
  Country: None (occurrence: None)
  Receive Date: 20050712
  Receipt Date: 20050708
  Transmission Date: 20060218
  Serious: Yes (Death, Hospitalization)
  Sender: FDA-Public Use
  Company Number: JP-BRISTOL-MYERS SQUIBB COMPANY-13031703

PATIENT
  Age: 36 Year
  Sex: Male

DRUGS (8)
  1. ZERIT [Suspect]
     Indication: HIV INFECTION
     Dosage: THERAPY DISCONTINUED ON 22-MAY-2000 AND RE-STARTED ON 07-AUG-2000
     Route: 048
     Dates: start: 19970908, end: 20030708
  2. VIDEX EC [Suspect]
     Indication: HIV INFECTION
     Route: 048
     Dates: start: 20010409, end: 20030708
  3. RETROVIR [Concomitant]
     Route: 048
     Dates: start: 19970723, end: 19970907
  4. EPIVIR [Concomitant]
     Route: 048
     Dates: start: 19970723, end: 19990221
  5. VIRAMUNE [Concomitant]
     Dosage: DOSAGE INCREASED TO 300 MG/DAY ON 08-MAR-1999 AND 400 MG/DAY ON 29-MAR-1999
     Route: 048
     Dates: start: 19990222, end: 20000410
  6. CRIXIVAN [Concomitant]
     Dosage: THERAPY DISCONTINUED ON 22-MAY-2000 AND RE-STARTED ON 02-JUL-2001
     Route: 048
     Dates: start: 20000411, end: 20010729
  7. VIRACEPT [Concomitant]
     Route: 048
     Dates: start: 20010305, end: 20010307
  8. NORVIR [Concomitant]
     Route: 048
     Dates: start: 20000411, end: 20000522

REACTIONS (3)
  - DEATH [None]
  - HEPATIC CIRRHOSIS [None]
  - PANCREATITIS [None]
